FAERS Safety Report 10733973 (Version 1)
Quarter: 2015Q1

REPORT INFORMATION
  Report Type: Spontaneous
  Country: US (occurrence: US)
  Receive Date: 20150123
  Receipt Date: 20150123
  Transmission Date: 20150721
  Serious: No
  Sender: FDA-Public Use
  Company Number: US-GLAXOSMITHKLINE-US2014GSK027441

PATIENT
  Age: 64 Year
  Sex: Female

DRUGS (1)
  1. ADVAIR DISKUS [Suspect]
     Active Substance: FLUTICASONE PROPIONATE\SALMETEROL XINAFOATE
     Indication: ASTHMA
     Dosage: UNK

REACTIONS (4)
  - Wheezing [Unknown]
  - Chronic obstructive pulmonary disease [Not Recovered/Not Resolved]
  - Product quality issue [Unknown]
  - Medication error [Unknown]

NARRATIVE: CASE EVENT DATE: 20141110
